FAERS Safety Report 7636785-0 (Version None)
Quarter: 2011Q3

REPORT INFORMATION
  Report Type: 
  Country: None (occurrence: None)
  Receive Date: 20110726
  Receipt Date: 20110718
  Transmission Date: 20111222
  Serious: Yes (Death)
  Sender: FDA-Public Use
  Company Number: CN-GENENTECH-321657

PATIENT
  Age: 65 Year
  Sex: Male

DRUGS (2)
  1. CHEMOTHERAPY NOS [Concomitant]
     Indication: BURKITT'S LYMPHOMA
     Dosage: UNK
  2. RITUXIMAB [Suspect]
     Indication: BURKITT'S LYMPHOMA
     Dosage: UNK
     Route: 041

REACTIONS (1)
  - DEATH [None]
